FAERS Safety Report 9892617 (Version 3)
Quarter: 2014Q3

REPORT INFORMATION
  Report Type: Report from Study
  Country: MX (occurrence: MX)
  Receive Date: 20140212
  Receipt Date: 20140820
  Transmission Date: 20150326
  Serious: Yes (Other)
  Sender: FDA-Public Use
  Company Number: PHHY2014MX017296

PATIENT
  Age: 62 Year
  Sex: Male

DRUGS (3)
  1. DIOVAN [Suspect]
     Active Substance: VALSARTAN
     Indication: HYPERTENSION
     Dosage: 80 MG, DAILY
     Route: 048
     Dates: start: 201102, end: 201405
  2. ACETYLSALICYLIC ACID [Concomitant]
     Active Substance: ASPIRIN
     Indication: CARDIOVASCULAR EVENT PROPHYLAXIS
     Dosage: 0.5 UKN, DAILY
     Dates: start: 201102
  3. HYDROCHLOROTHIAZIDE. [Concomitant]
     Active Substance: HYDROCHLOROTHIAZIDE
     Indication: DIURETIC THERAPY
     Dosage: 1 UKN, DAILY
     Dates: start: 201102

REACTIONS (4)
  - Cardiomegaly [Not Recovered/Not Resolved]
  - Drug ineffective [Recovered/Resolved]
  - Cardiac disorder [Not Recovered/Not Resolved]
  - Hypertension [Recovered/Resolved]
